FAERS Safety Report 6125226-0 (Version None)
Quarter: 2009Q1

REPORT INFORMATION
  Report Type: 
  Country: None (occurrence: None)
  Receive Date: 20090320
  Receipt Date: 20090309
  Transmission Date: 20090719
  Serious: Yes (Other)
  Sender: FDA-Public Use
  Company Number: GB-RANBAXY-2009RR-22567

PATIENT
  Age: 78 Year
  Sex: Female
  Weight: 90 kg

DRUGS (3)
  1. FUROSEMIDE [Suspect]
     Indication: OEDEMA
     Dosage: 20 MG, UNK
     Route: 048
     Dates: start: 20090101
  2. BETAHISTINE [Suspect]
     Indication: DIZZINESS
     Dosage: 8 MG, BID
     Route: 048
     Dates: start: 20060101
  3. POMEGRANATE [Suspect]
     Dosage: 1 DF, QD
     Route: 048

REACTIONS (2)
  - FOOD INTERACTION [None]
  - GOUT [None]
